FAERS Safety Report 9503839 (Version 2)
Quarter: 2013Q3

REPORT INFORMATION
  Report Type: Report from Study
  Country: BR (occurrence: BR)
  Receive Date: 20130906
  Receipt Date: 20130926
  Transmission Date: 20140515
  Serious: No
  Sender: FDA-Public Use
  Company Number: BR-GALDERMA-BR13002739

PATIENT
  Sex: Female

DRUGS (1)
  1. DIFFERIN [Suspect]
     Indication: PHOTODERMATOSIS
     Dosage: 0.3%
     Route: 061
     Dates: start: 20130227, end: 20130327

REACTIONS (1)
  - Eyelid oedema [Recovered/Resolved]
